FAERS Safety Report 5638543-5 (Version None)
Quarter: 2008Q1

REPORT INFORMATION
  Report Type: 
  Country: None (occurrence: None)
  Receive Date: 20080226
  Receipt Date: 20070612
  Transmission Date: 20080703
  Serious: No
  Sender: FDA-Public Use
  Company Number: A0646294A

PATIENT
  Sex: Female

DRUGS (9)
  1. IMITREX [Suspect]
     Indication: MIGRAINE
     Dosage: 6MG AS REQUIRED
     Route: 058
     Dates: start: 20070401, end: 20070401
  2. VERAPAMIL [Concomitant]
     Dosage: 120MG PER DAY
     Route: 048
  3. SERTRALINE [Concomitant]
     Dosage: 50MG PER DAY
     Route: 048
  4. ESTRADIOL [Concomitant]
     Dosage: 1MG PER DAY
     Route: 048
  5. ALPRAZOLAM [Concomitant]
     Dosage: 2MG PER DAY
     Route: 048
  6. GABAPENTIN [Concomitant]
     Dosage: 900MG PER DAY
     Route: 048
  7. TRAZODONE HCL [Concomitant]
     Dosage: 300MG PER DAY
     Route: 048
  8. PROTONIX [Concomitant]
     Dosage: 40MG PER DAY
     Route: 048
  9. AMITRIPTYLINE HCL [Concomitant]
     Dosage: 50MG PER DAY
     Route: 048

REACTIONS (2)
  - DRUG INEFFECTIVE [None]
  - PHARMACEUTICAL PRODUCT COMPLAINT [None]
